FAERS Safety Report 9239818 (Version 4)
Quarter: 2013Q4

REPORT INFORMATION
  Report Type: Report from Study
  Country: US (occurrence: US)
  Receive Date: 20130418
  Receipt Date: 20131226
  Transmission Date: 20140711
  Serious: Yes (Hospitalization, Other)
  Sender: FDA-Public Use
  Company Number: US-SANOFI-AVENTIS-2013SA038692

PATIENT
  Age: 50 Year
  Sex: Male

DRUGS (1)
  1. AUBAGIO [Suspect]
     Indication: MULTIPLE SCLEROSIS
     Route: 048
     Dates: start: 20130111

REACTIONS (10)
  - Bladder catheterisation [Unknown]
  - Procedural haemorrhage [Unknown]
  - Neoplasm [Unknown]
  - Muscle spasms [Recovered/Resolved]
  - Neck pain [Not Recovered/Not Resolved]
  - Hot flush [Unknown]
  - Decreased appetite [Unknown]
  - Dysgeusia [Recovering/Resolving]
  - Diarrhoea [Unknown]
  - Visual impairment [Unknown]
